FAERS Safety Report 13388368 (Version 2)
Quarter: 2017Q3

REPORT INFORMATION
  Report Type: Spontaneous
  Country: US (occurrence: US)
  Receive Date: 20170330
  Receipt Date: 20170724
  Transmission Date: 20171127
  Serious: No
  Sender: FDA-Public Use
  Company Number: US-LUPIN PHARMACEUTICALS INC.-E2B_00007327

PATIENT
  Age: 70 Year
  Sex: Female

DRUGS (1)
  1. GAVILYTE G [Suspect]
     Active Substance: POLYETHYLENE GLYCOL 3350\POTASSIUM CHLORIDE\SODIUM BICARBONATE\SODIUM CHLORIDE\SODIUM SULFATE ANHYDROUS
     Indication: CONSTIPATION
     Dosage: 8 OUNCE EVERY 10 MINUTES
     Route: 048
     Dates: start: 20170121, end: 20170121

REACTIONS (3)
  - Vomiting [Unknown]
  - Therapeutic response delayed [Recovered/Resolved]
  - Off label use [None]

NARRATIVE: CASE EVENT DATE: 20170121
